FAERS Safety Report 18446852 (Version 1)
Quarter: 2020Q4

REPORT INFORMATION
  Report Type: Spontaneous
  Country: US (occurrence: US)
  Receive Date: 20201030
  Receipt Date: 20201030
  Transmission Date: 20210114
  Serious: Yes (Death)
  Sender: FDA-Public Use
  Company Number: None

PATIENT
  Age: 79 Year
  Sex: Female

DRUGS (11)
  1. OXYCODONE [Concomitant]
     Active Substance: OXYCODONE
  2. MIDODRINE [Concomitant]
     Active Substance: MIDODRINE
  3. GENTAMICIN. [Concomitant]
     Active Substance: GENTAMICIN
  4. METRONIDAZOL [Concomitant]
     Active Substance: METRONIDAZOLE
  5. ATORVASTATIN [Concomitant]
     Active Substance: ATORVASTATIN
  6. CINACALCET. [Suspect]
     Active Substance: CINACALCET
     Indication: HYPERPARATHYROIDISM SECONDARY
     Route: 048
     Dates: start: 20200819, end: 20201016
  7. HYDROCO/APAP [Concomitant]
     Active Substance: ACETAMINOPHEN\HYDROCODONE
  8. AMIODARONE [Concomitant]
     Active Substance: AMIODARONE
  9. ELIQUIS [Concomitant]
     Active Substance: APIXABAN
  10. POT CL MICRO [Concomitant]
  11. SEVELAMER [Concomitant]
     Active Substance: SEVELAMER

REACTIONS (1)
  - Death [None]

NARRATIVE: CASE EVENT DATE: 20201016
